FAERS Safety Report 5841186-1 (Version None)
Quarter: 2008Q3

REPORT INFORMATION
  Report Type: 
  Country: None (occurrence: None)
  Receive Date: 20080812
  Receipt Date: 20080731
  Transmission Date: 20090109
  Serious: No
  Sender: FDA-Public Use
  Company Number: US-PFIZER INC-2007100617

PATIENT
  Age: 12 Year
  Sex: Male
  Weight: 68 kg

DRUGS (20)
  1. SOLU-MEDROL [Suspect]
     Indication: ASTHMA
     Dates: start: 19970101, end: 19970101
  2. FENTANYL [Suspect]
  3. IBUPROFEN [Suspect]
  4. ALBUTEROL SULFATE [Suspect]
     Indication: ASTHMA
     Route: 055
     Dates: start: 19960901, end: 19970412
  5. TERBUTALINE SULFATE [Suspect]
     Dates: start: 19970101, end: 19970101
  6. LASIX [Suspect]
  7. DIAMOX SRC [Suspect]
  8. OXACILLIN [Concomitant]
  9. CEFTAZIDIME [Concomitant]
  10. METHYLPREDNISOLONE [Concomitant]
  11. TERBUTALINE SULFATE [Concomitant]
  12. ATROVENT [Concomitant]
  13. EPINEPHRINE [Concomitant]
  14. DOPAMINE HCL [Concomitant]
  15. DOBUTAMINE HCL [Concomitant]
  16. RANITIDINE [Concomitant]
  17. SUCRALFATE [Concomitant]
  18. AZMACORT [Concomitant]
  19. PREDNISONE TAB [Concomitant]
  20. NASACORT [Concomitant]

REACTIONS (1)
  - NO ADVERSE EVENT [None]
